FAERS Safety Report 6131218-8 (Version None)
Quarter: 2009Q1

REPORT INFORMATION
  Report Type: 
  Country: None (occurrence: None)
  Receive Date: 20090325
  Receipt Date: 20090320
  Transmission Date: 20090719
  Serious: Yes (Other)
  Sender: FDA-Public Use
  Company Number: DE-AVENTIS-200910800DE

PATIENT
  Age: 17 Year
  Sex: Female

DRUGS (3)
  1. KETEK [Suspect]
     Indication: TONSILLITIS
     Route: 048
     Dates: start: 20090201, end: 20090201
  2. AMOXICILLIN [Concomitant]
     Indication: TONSILLITIS
     Dosage: DOSE: NOT REPORTED
     Route: 048
     Dates: start: 20090201, end: 20090201
  3. CONTRACEPTIVES NOS [Concomitant]
     Indication: CONTRACEPTION
     Dosage: DOSE: NOT REPORTED
     Route: 048

REACTIONS (4)
  - HAEMATOMA [None]
  - RASH GENERALISED [None]
  - RASH PRURITIC [None]
  - SWELLING [None]
